FAERS Safety Report 9267154 (Version 2)
Quarter: 2013Q2

REPORT INFORMATION
  Report Type: Spontaneous
  Country: US (occurrence: US)
  Receive Date: 20130502
  Receipt Date: 20130524
  Transmission Date: 20140414
  Serious: No
  Sender: FDA-Public Use
  Company Number: US-009507513-1304USA008282

PATIENT
  Age: 55 Year
  Sex: Female
  Weight: 57.6 kg

DRUGS (11)
  1. PEGINTRON [Suspect]
     Indication: HEPATITIS C
     Dosage: 96 MICROGRAM, QW
     Route: 058
     Dates: start: 20130412
  2. RIBASPHERE [Suspect]
     Indication: HEPATITIS C
     Dosage: UNK
     Dates: start: 20130412
  3. TELAPREVIR [Suspect]
     Indication: HEPATITIS C
     Dosage: UNK
     Dates: start: 20130412
  4. HYDROCORTISONE [Concomitant]
     Route: 061
  5. WELLBUTRIN [Concomitant]
  6. ZOFRAN [Concomitant]
  7. FLONASE [Concomitant]
  8. TRAZODONE HYDROCHLORIDE [Concomitant]
  9. NEXIUM [Concomitant]
  10. ARMOUR THYROID TABLETS [Concomitant]
  11. FIORICET [Concomitant]

REACTIONS (4)
  - Pain in extremity [Unknown]
  - Erythema [Unknown]
  - Musculoskeletal pain [Unknown]
  - Nausea [Recovered/Resolved]
